FAERS Safety Report 17604895 (Version 3)
Quarter: 2020Q2

REPORT INFORMATION
  Report Type: Report from Study
  Country: None (occurrence: US)
  Receive Date: 20200331
  Receipt Date: 20200529
  Transmission Date: 20200713
  Serious: No
  Sender: FDA-Public Use
  Company Number: US-ABBVIE-20K-163-3341455-00

PATIENT
  Sex: Female
  Weight: 97.61 kg

DRUGS (17)
  1. RINVOQ [Suspect]
     Active Substance: UPADACITINIB
     Indication: RHEUMATOID ARTHRITIS
     Route: 048
     Dates: start: 201911
  2. GABAPENTIN. [Concomitant]
     Active Substance: GABAPENTIN
     Indication: RHEUMATOID ARTHRITIS
  3. FOLIC ACID. [Concomitant]
     Active Substance: FOLIC ACID
     Indication: VITAMIN SUPPLEMENTATION
  4. MORPHINE [Concomitant]
     Active Substance: MORPHINE
     Indication: RHEUMATOID ARTHRITIS
  5. DRONABINOL. [Concomitant]
     Active Substance: DRONABINOL
     Indication: RHEUMATOID ARTHRITIS
  6. TIZANIDINE. [Concomitant]
     Active Substance: TIZANIDINE
     Indication: RHEUMATOID ARTHRITIS
     Dosage: PRN
  7. HYDROCORTISONE. [Concomitant]
     Active Substance: HYDROCORTISONE
     Indication: RHEUMATOID ARTHRITIS
     Dates: start: 2017
  8. VENLAFAXINE [Concomitant]
     Active Substance: VENLAFAXINE HYDROCHLORIDE
     Indication: PRODUCT USED FOR UNKNOWN INDICATION
  9. DRONABINOL. [Concomitant]
     Active Substance: DRONABINOL
     Indication: SYSTEMIC LUPUS ERYTHEMATOSUS
  10. METHOTREXATE. [Concomitant]
     Active Substance: METHOTREXATE
     Indication: RHEUMATOID ARTHRITIS
  11. HYDROCORTISONE. [Concomitant]
     Active Substance: HYDROCORTISONE
     Indication: SYSTEMIC LUPUS ERYTHEMATOSUS
  12. MORPHINE [Concomitant]
     Active Substance: MORPHINE
     Indication: SYSTEMIC LUPUS ERYTHEMATOSUS
  13. GABAPENTIN. [Concomitant]
     Active Substance: GABAPENTIN
     Indication: SYSTEMIC LUPUS ERYTHEMATOSUS
  14. COLAZAL [Concomitant]
     Active Substance: BALSALAZIDE DISODIUM
     Indication: COLITIS ULCERATIVE
  15. DRONABINOL. [Concomitant]
     Active Substance: DRONABINOL
     Indication: NAUSEA
  16. ZOLPIDEM [Concomitant]
     Active Substance: ZOLPIDEM TARTRATE
     Indication: INSOMNIA
  17. TIZANIDINE. [Concomitant]
     Active Substance: TIZANIDINE
     Indication: SYSTEMIC LUPUS ERYTHEMATOSUS

REACTIONS (3)
  - Arthralgia [Unknown]
  - Seasonal allergy [Not Recovered/Not Resolved]
  - Drug ineffective [Not Recovered/Not Resolved]

NARRATIVE: CASE EVENT DATE: 2019
